FAERS Safety Report 4601042-3 (Version None)
Quarter: 2005Q1

REPORT INFORMATION
  Report Type: 
  Country: None (occurrence: None)
  Receive Date: 20050307
  Receipt Date: 20050307
  Transmission Date: 20050727
  Serious: Yes (Other)
  Sender: FDA-Public Use
  Company Number: None

PATIENT
  Sex: Female
  Weight: 54.4316 kg

DRUGS (2)
  1. MOBIC [Suspect]
     Indication: OSTEOARTHRITIS
     Dosage: 7.5MG   DAILY   ORAL
     Route: 048
     Dates: start: 20030315, end: 20050110
  2. RELAFEN [Suspect]
     Indication: OSTEOARTHRITIS
     Dosage: 500MG    DAILY    ORAL
     Route: 048
     Dates: start: 19960310, end: 20030310

REACTIONS (1)
  - CARDIAC ENZYMES INCREASED [None]
